FAERS Safety Report 16420297 (Version 2)
Quarter: 2019Q2

REPORT INFORMATION
  Report Type: Spontaneous
  Country: US (occurrence: US)
  Receive Date: 20190612
  Receipt Date: 20190620
  Transmission Date: 20190711
  Serious: No
  Sender: FDA-Public Use
  Company Number: US-PFIZER INC-2019245237

PATIENT
  Age: 91 Year
  Sex: Male

DRUGS (2)
  1. LYRICA [Suspect]
     Active Substance: PREGABALIN
     Dosage: 75 MG, 3X/DAY
  2. LYRICA [Suspect]
     Active Substance: PREGABALIN
     Dosage: 50 MG, UNK

REACTIONS (6)
  - Insomnia [Unknown]
  - Arthritis [Unknown]
  - General physical health deterioration [Unknown]
  - Gait disturbance [Unknown]
  - Nervousness [Unknown]
  - Intentional product use issue [Unknown]
